FAERS Safety Report 4928899-0 (Version None)
Quarter: 2006Q1

REPORT INFORMATION
  Report Type: 
  Country: None (occurrence: None)
  Receive Date: 20060301
  Receipt Date: 20060220
  Transmission Date: 20060701
  Serious: Yes (Other)
  Sender: FDA-Public Use
  Company Number: DE-ABBOTT-06P-062-0325532-00

PATIENT
  Sex: Male

DRUGS (1)
  1. ERGENYL CHRONO TABLETS [Suspect]
     Indication: EPILEPSY
     Route: 048
     Dates: start: 19860101, end: 19950101

REACTIONS (2)
  - OSTEOPOROSIS [None]
  - SPINAL FRACTURE [None]
